FAERS Safety Report 7219832-X (Version None)
Quarter: 2011Q1

REPORT INFORMATION
  Report Type: 
  Country: None (occurrence: None)
  Receive Date: 20110111
  Receipt Date: 20110104
  Transmission Date: 20110831
  Serious: Yes (Hospitalization, Other)
  Sender: FDA-Public Use
  Company Number: US-ROCHE-721627

PATIENT
  Sex: Male
  Weight: 71.7 kg

DRUGS (3)
  1. ACCUTANE [Suspect]
     Route: 065
     Dates: start: 19911002, end: 19911227
  2. ACCUTANE [Suspect]
     Route: 065
     Dates: start: 19910820
  3. PREDNICEN-M [Concomitant]

REACTIONS (7)
  - INFLAMMATORY BOWEL DISEASE [None]
  - NEPHROLITHIASIS [None]
  - SMALL INTESTINAL OBSTRUCTION [None]
  - LIP DRY [None]
  - DEPRESSION [None]
  - COLITIS ULCERATIVE [None]
  - INFECTION [None]
